FAERS Safety Report 9599350 (Version 1)
Quarter: 2013Q4

REPORT INFORMATION
  Report Type: Spontaneous
  Country: US (occurrence: US)
  Receive Date: 20131004
  Receipt Date: 20131004
  Transmission Date: 20140711
  Serious: No
  Sender: FDA-Public Use
  Company Number: US-AMGEN-USASP2013029051

PATIENT
  Age: 26 Year
  Sex: Female
  Weight: 104.31 kg

DRUGS (4)
  1. ENBREL [Suspect]
     Indication: PRODUCT USED FOR UNKNOWN INDICATION
     Dosage: 50 MG, QWK
     Route: 058
  2. GABAPENTIN [Concomitant]
     Dosage: 400 MG, UNK
  3. RISPERDAL [Concomitant]
     Dosage: 1 MG, UNK
  4. CLOBETASOL [Concomitant]
     Dosage: 0.05 %, UNK

REACTIONS (1)
  - Injection site erythema [Unknown]
